FAERS Safety Report 6122066-3 (Version None)
Quarter: 2009Q1

REPORT INFORMATION
  Report Type: 
  Country: None (occurrence: None)
  Receive Date: 20090316
  Receipt Date: 20090316
  Transmission Date: 20090719
  Serious: Yes (Hospitalization)
  Sender: FDA-Public Use
  Company Number: None

PATIENT
  Sex: Male
  Weight: 70.2 kg

DRUGS (3)
  1. CYTARABINE [Suspect]
     Dosage: 2730 MG
  2. DAUNORUBICIN HCL [Suspect]
     Dosage: 238 MG
  3. ETOPOSIDE [Suspect]
     Dosage: 808 MG

REACTIONS (16)
  - ATELECTASIS [None]
  - BILIRUBIN CONJUGATED INCREASED [None]
  - CARDIAC FAILURE CONGESTIVE [None]
  - CARDIOMEGALY [None]
  - HYPOTENSION [None]
  - LEFT VENTRICULAR DYSFUNCTION [None]
  - LIVER DISORDER [None]
  - LUNG CONSOLIDATION [None]
  - LUNG INFILTRATION [None]
  - PERICARDIAL EFFUSION [None]
  - PLEURAL EFFUSION [None]
  - PULMONARY HYPERTENSION [None]
  - PULMONARY OEDEMA [None]
  - RESPIRATORY DISTRESS [None]
  - SEPSIS [None]
  - TACHYPNOEA [None]
